FAERS Safety Report 20976414 (Version 1)
Quarter: 2022Q2

REPORT INFORMATION
  Report Type: Spontaneous
  Country: CO (occurrence: CO)
  Receive Date: 20220617
  Receipt Date: 20220617
  Transmission Date: 20220721
  Serious: Yes (Death)
  Sender: FDA-Public Use
  Company Number: CO-DAIICHI SANKYO EUROPE GMBH-DSE-2022-120316

PATIENT
  Age: 66 Year
  Sex: Male

DRUGS (1)
  1. EFFIENT [Suspect]
     Active Substance: PRASUGREL HYDROCHLORIDE
     Indication: Acute myocardial infarction
     Dosage: 10 MG, QD
     Route: 048
     Dates: start: 20211230

REACTIONS (1)
  - Death [Fatal]
